FAERS Safety Report 9777985 (Version 2)
Quarter: 2013Q4

REPORT INFORMATION
  Report Type: Spontaneous
  Country: US (occurrence: US)
  Receive Date: 20131223
  Receipt Date: 20131223
  Transmission Date: 20140711
  Serious: Yes (Hospitalization, Other)
  Sender: FDA-Public Use
  Company Number: US-ASTRAZENECA-2010SE29328

PATIENT
  Sex: Female

DRUGS (4)
  1. NEXIUM [Suspect]
     Indication: GASTRIC DISORDER
     Route: 048
     Dates: start: 2007
  2. COUMADIN [Concomitant]
  3. BONIVA [Concomitant]
     Indication: OSTEOPOROSIS
     Dates: start: 201005
  4. IV RECLAST [Concomitant]
     Route: 042

REACTIONS (14)
  - Stress cardiomyopathy [Unknown]
  - Foot fracture [Unknown]
  - Joint dislocation [Unknown]
  - Femur fracture [Unknown]
  - Thrombosis [Unknown]
  - Pulmonary embolism [Unknown]
  - Lower limb fracture [Unknown]
  - Gait disturbance [Unknown]
  - Limb deformity [Unknown]
  - Fall [Unknown]
  - Dyspnoea [Unknown]
  - Blood glucose increased [Unknown]
  - Impaired healing [Unknown]
  - Arthritis [Unknown]
